FAERS Safety Report 7040414-7 (Version None)
Quarter: 2010Q4

REPORT INFORMATION
  Report Type: 
  Country: None (occurrence: None)
  Receive Date: 20101008
  Receipt Date: 20101008
  Transmission Date: 20110411
  Serious: Yes (Life-Threatening, Hospitalization, Disabling)
  Sender: FDA-Public Use
  Company Number: None

PATIENT
  Age: 52 Year
  Sex: Female
  Weight: 67.586 kg

DRUGS (1)
  1. DEPAKOTE [Suspect]
     Indication: CONVULSION
     Dosage: 2 TABLETS 2 DAILY 500 MG EACH (FROM FEB UNTIL MAY)

REACTIONS (6)
  - ABASIA [None]
  - FEEDING DISORDER [None]
  - HYPERSOMNIA [None]
  - PNEUMONIA ASPIRATION [None]
  - SOMNOLENCE [None]
  - SPEECH DISORDER [None]
